FAERS Safety Report 25205610 (Version 1)
Quarter: 2025Q2

REPORT INFORMATION
  Report Type: Spontaneous
  Country: CN (occurrence: CN)
  Receive Date: 20250417
  Receipt Date: 20250417
  Transmission Date: 20250717
  Serious: Yes (Hospitalization, Other)
  Sender: TAKEDA
  Company Number: CN-TAKEDA-2025TUS037196

PATIENT
  Age: 51 Year
  Sex: Male
  Weight: 77 kg

DRUGS (3)
  1. NESINA [Suspect]
     Active Substance: ALOGLIPTIN BENZOATE
     Indication: Femur fracture
     Dosage: UNK, QD
     Dates: start: 20250324, end: 20250407
  2. PIPERACILLIN AND TAZOBACTAM [Suspect]
     Active Substance: PIPERACILLIN SODIUM\TAZOBACTAM SODIUM
     Indication: Femur fracture
     Dosage: UNK, BID
     Dates: start: 20250314, end: 20250403
  3. CODEINE\IBUPROFEN [Suspect]
     Active Substance: CODEINE\IBUPROFEN
     Indication: Femur fracture
     Dosage: UNK, BID
     Dates: start: 20250316, end: 20250404

REACTIONS (3)
  - Rash [Recovering/Resolving]
  - Pruritus [Recovering/Resolving]
  - Eosinophil count increased [Recovering/Resolving]

NARRATIVE: CASE EVENT DATE: 20250401
